FAERS Safety Report 16403793 (Version 1)
Quarter: 2019Q3

REPORT INFORMATION
  Report Type: Spontaneous
  Country: US (occurrence: US)
  Receive Date: 20190606
  Receipt Date: 20190606
  Transmission Date: 20191004
  Serious: Yes (Other)
  Sender: FDA-Public Use
  Company Number: None

PATIENT
  Age: 9 Year
  Weight: 27 kg

DRUGS (7)
  1. FLONASE [Concomitant]
     Active Substance: FLUTICASONE PROPIONATE
  2. FLOVENT [Concomitant]
     Active Substance: FLUTICASONE PROPIONATE
  3. VITAMIN D [Concomitant]
     Active Substance: VITAMIN D NOS
  4. MONTELUKAST SODIUM. [Suspect]
     Active Substance: MONTELUKAST SODIUM
     Indication: ASTHMA
     Dosage: ?          QUANTITY:1 TABLET(S);?
     Route: 048
     Dates: start: 20181119, end: 20190506
  5. MAGNESIUM [Concomitant]
     Active Substance: MAGNESIUM
  6. MONTELUKAST SODIUM. [Suspect]
     Active Substance: MONTELUKAST SODIUM
     Indication: COUGH
     Dosage: ?          QUANTITY:1 TABLET(S);?
     Route: 048
     Dates: start: 20181119, end: 20190506
  7. MVI [Concomitant]
     Active Substance: VITAMINS

REACTIONS (5)
  - Paranoia [None]
  - Irritability [None]
  - Agitation [None]
  - Negative thoughts [None]
  - Obsessive thoughts [None]

NARRATIVE: CASE EVENT DATE: 20190420
